FAERS Safety Report 7046948-3 (Version None)
Quarter: 2010Q4

REPORT INFORMATION
  Report Type: 
  Country: None (occurrence: None)
  Receive Date: 20101015
  Receipt Date: 20101007
  Transmission Date: 20110411
  Serious: Yes (Hospitalization)
  Sender: FDA-Public Use
  Company Number: AU-WYE-H18047610

PATIENT
  Sex: Male

DRUGS (7)
  1. SIROLIMUS [Suspect]
     Indication: PROPHYLAXIS AGAINST TRANSPLANT REJECTION
     Route: 048
     Dates: start: 20100805
  2. MYCOPHENOLATE MOFETIL [Concomitant]
     Indication: PROPHYLAXIS AGAINST TRANSPLANT REJECTION
     Route: 048
     Dates: start: 20071001
  3. NOVOMIX [Concomitant]
     Indication: TYPE 2 DIABETES MELLITUS
     Dosage: SLIDING SCALE TWICE DAILY
     Route: 058
     Dates: start: 20071018
  4. OSTELIN [Concomitant]
     Indication: OSTEOPOROSIS
     Route: 048
     Dates: start: 20071213
  5. RISEDRONATE SODIUM [Concomitant]
     Indication: OSTEOPOROSIS
     Route: 048
     Dates: start: 20090909
  6. RAMIPRIL, TEST ARTICLE IN SIROLIMUS STUDY [Suspect]
     Indication: PROTEINURIA
     Route: 048
     Dates: start: 20100716
  7. PREDNISOLONE [Concomitant]
     Indication: PROPHYLAXIS AGAINST TRANSPLANT REJECTION
     Route: 048
     Dates: start: 20071001

REACTIONS (1)
  - URINARY TRACT INFECTION [None]
